FAERS Safety Report 13148621 (Version 1)
Quarter: 2017Q1

REPORT INFORMATION
  Report Type: Spontaneous
  Country: US (occurrence: US)
  Receive Date: 20170125
  Receipt Date: 20170125
  Transmission Date: 20170428
  Serious: No
  Sender: FDA-Public Use
  Company Number: US-PFIZER INC-2017027104

PATIENT
  Sex: Female

DRUGS (1)
  1. PREMARIN [Suspect]
     Active Substance: ESTROGENS, CONJUGATED
     Dosage: UNK
     Dates: start: 201701

REACTIONS (3)
  - Musculoskeletal stiffness [Unknown]
  - Headache [Unknown]
  - Head discomfort [Unknown]

NARRATIVE: CASE EVENT DATE: 201701
